FAERS Safety Report 14688200 (Version 4)
Quarter: 2018Q3

REPORT INFORMATION
  Report Type: Report from Study
  Country: None (occurrence: US)
  Receive Date: 20180328
  Receipt Date: 20180831
  Transmission Date: 20181010
  Serious: Yes (Hospitalization, Other)
  Sender: FDA-Public Use
  Company Number: US-ABBVIE-18K-163-2296091-00

PATIENT
  Age: 65 Year
  Sex: Male
  Weight: 109.87 kg

DRUGS (23)
  1. FUROSEMIDE. [Concomitant]
     Active Substance: FUROSEMIDE
     Indication: DIURETIC THERAPY
  2. ATORVASTATIN [Concomitant]
     Active Substance: ATORVASTATIN
     Indication: BLOOD CHOLESTEROL INCREASED
  3. HUMIRA [Suspect]
     Active Substance: ADALIMUMAB
     Route: 058
     Dates: start: 20180206, end: 2018
  4. ACETAZOLAMIDE. [Concomitant]
     Active Substance: ACETAZOLAMIDE
     Indication: PRODUCT USED FOR UNKNOWN INDICATION
  5. HUMIRA [Suspect]
     Active Substance: ADALIMUMAB
     Indication: UVEITIS
     Route: 058
     Dates: start: 201712, end: 20180206
  6. VITAMIN D2 [Concomitant]
     Active Substance: ERGOCALCIFEROL
     Indication: VITAMIN SUPPLEMENTATION
  7. DICLOFENAC [Concomitant]
     Active Substance: DICLOFENAC
     Indication: NECK PAIN
  8. TRAMADOL. [Concomitant]
     Active Substance: TRAMADOL
     Indication: PAIN
  9. TRAZODONE [Concomitant]
     Active Substance: TRAZODONE HYDROCHLORIDE
     Indication: SLEEP DISORDER THERAPY
  10. ALLOPURINOL. [Concomitant]
     Active Substance: ALLOPURINOL
     Indication: PRODUCT USED FOR UNKNOWN INDICATION
  11. AMLODIPINE BESYLATE. [Concomitant]
     Active Substance: AMLODIPINE BESYLATE
     Indication: PRODUCT USED FOR UNKNOWN INDICATION
  12. IRON [Concomitant]
     Active Substance: IRON
     Indication: MINERAL SUPPLEMENTATION
  13. COLCHICINE. [Concomitant]
     Active Substance: COLCHICINE
     Indication: GOUT
  14. HUMIRA [Suspect]
     Active Substance: ADALIMUMAB
     Route: 058
     Dates: start: 2018, end: 201808
  15. POTASSIUM CITRATE. [Concomitant]
     Active Substance: POTASSIUM CITRATE
     Indication: MINERAL SUPPLEMENTATION
  16. MAGNESIUM [Concomitant]
     Active Substance: MAGNESIUM
     Indication: MINERAL SUPPLEMENTATION
  17. PANTOPRAZOLE [Concomitant]
     Active Substance: PANTOPRAZOLE
     Indication: PRODUCT USED FOR UNKNOWN INDICATION
  18. HUMIRA [Suspect]
     Active Substance: ADALIMUMAB
     Indication: RHEUMATOID ARTHRITIS
     Route: 058
     Dates: start: 20170425, end: 201712
  19. METOPROLOL. [Concomitant]
     Active Substance: METOPROLOL
     Indication: PRODUCT USED FOR UNKNOWN INDICATION
  20. VITAMIN B6 [Concomitant]
     Active Substance: PYRIDOXINE HYDROCHLORIDE
     Indication: VITAMIN SUPPLEMENTATION
  21. WARFARIN [Concomitant]
     Active Substance: WARFARIN
     Indication: THROMBOSIS PROPHYLAXIS
  22. AZELASTINE. [Concomitant]
     Active Substance: AZELASTINE HYDROCHLORIDE
     Indication: RESPIRATORY TRACT CONGESTION
  23. TRIAMCINOLONE ACETONIDE. [Concomitant]
     Active Substance: TRIAMCINOLONE ACETONIDE
     Indication: PRURITUS

REACTIONS (21)
  - Visual impairment [Not Recovered/Not Resolved]
  - Joint instability [Unknown]
  - Localised infection [Not Recovered/Not Resolved]
  - Peripheral venous disease [Recovering/Resolving]
  - Inflammation [Unknown]
  - Fall [Recovered/Resolved]
  - Rotator cuff syndrome [Unknown]
  - Muscle rupture [Recovering/Resolving]
  - Musculoskeletal pain [Recovering/Resolving]
  - Muscle strain [Recovering/Resolving]
  - Ligament sprain [Recovering/Resolving]
  - Fall [Recovered/Resolved]
  - Fall [Unknown]
  - Pain [Recovering/Resolving]
  - Balance disorder [Not Recovered/Not Resolved]
  - Limb injury [Unknown]
  - Arthritis infective [Unknown]
  - Phlebitis [Recovering/Resolving]
  - Fall [Recovered/Resolved]
  - Muscle strain [Unknown]
  - Joint instability [Recovered/Resolved]

NARRATIVE: CASE EVENT DATE: 2018
